FAERS Safety Report 6892696-X (Version None)
Quarter: 2010Q3

REPORT INFORMATION
  Report Type: 
  Country: None (occurrence: None)
  Receive Date: 20100731
  Receipt Date: 20080819
  Transmission Date: 20110219
  Serious: No
  Sender: FDA-Public Use
  Company Number: US-PFIZER INC-2008070283

PATIENT
  Sex: Female
  Weight: 40.82 kg

DRUGS (7)
  1. NEURONTIN [Suspect]
     Indication: NERVE INJURY
     Dates: start: 20070101
  2. LYRICA [Suspect]
     Indication: NERVE INJURY
     Dates: start: 20080701
  3. LYRICA [Suspect]
     Indication: FIBROMYALGIA
  4. LEXAPRO [Concomitant]
  5. IBANDRONATE SODIUM [Concomitant]
  6. NEXIUM [Concomitant]
  7. ANASTROZOLE [Concomitant]

REACTIONS (4)
  - DRUG INEFFECTIVE [None]
  - INSOMNIA [None]
  - PARAESTHESIA [None]
  - URTICARIA [None]
